FAERS Safety Report 14380474 (Version 2)
Quarter: 2018Q1

REPORT INFORMATION
  Report Type: Report from Study
  Country: DE (occurrence: DE)
  Receive Date: 20180112
  Receipt Date: 20180202
  Transmission Date: 20180509
  Serious: Yes (Hospitalization)
  Sender: FDA-Public Use
  Company Number: DE-ROCHE-2052330

PATIENT
  Sex: Male
  Weight: 92 kg

DRUGS (15)
  1. FLUDARABINE PHOSPHATE. [Suspect]
     Active Substance: FLUDARABINE PHOSPHATE
     Indication: CHRONIC LYMPHOCYTIC LEUKAEMIA
     Dosage: 22/DEC/2017, LAST DOSE PRIOR TO SAE 52 MG
     Route: 065
     Dates: start: 20171220, end: 20171222
  2. PREDNISOLONE. [Concomitant]
     Active Substance: PREDNISOLONE
     Route: 042
     Dates: start: 20180104, end: 20180104
  3. ALLOPURINOL. [Concomitant]
     Active Substance: ALLOPURINOL
     Route: 048
     Dates: start: 20171108, end: 20180103
  4. NERISONA [Concomitant]
     Active Substance: DIFLUCORTOLONE VALERATE
     Route: 050
     Dates: start: 20180104
  5. THESIT [Concomitant]
     Route: 054
     Dates: start: 20180104
  6. FENISTIL (GERMANY) [Concomitant]
     Route: 048
     Dates: start: 20171227
  7. RITUXIMAB. [Suspect]
     Active Substance: RITUXIMAB
     Indication: CHRONIC LYMPHOCYTIC LEUKAEMIA
     Dosage: 15/DEC/2017, LAST DOSE PRIOR TO SAE 1040 MG
     Route: 065
     Dates: start: 20171215, end: 20171215
  8. LOVENOX [Suspect]
     Active Substance: ENOXAPARIN SODIUM
     Indication: PRODUCT USED FOR UNKNOWN INDICATION
     Route: 058
     Dates: start: 20171223
  9. DERMATOP [Concomitant]
     Active Substance: PREDNICARBATE
     Route: 048
     Dates: start: 20180104
  10. FENISTIL (GERMANY) [Concomitant]
     Route: 042
     Dates: start: 20180104
  11. PANTOPRAZOLE SODIUM. [Concomitant]
     Active Substance: PANTOPRAZOLE SODIUM
     Route: 048
     Dates: start: 20171108, end: 20180103
  12. ALFASON [Concomitant]
     Active Substance: HYDROCORTISONE BUTYRATE
     Route: 050
     Dates: start: 20180104
  13. COTRIM FORTE [Concomitant]
     Active Substance: SULFAMETHOXAZOLE\TRIMETHOPRIM
     Route: 048
     Dates: start: 20171108, end: 20180103
  14. CYCLOPHOSPHAMIDE. [Suspect]
     Active Substance: CYCLOPHOSPHAMIDE
     Indication: CHRONIC LYMPHOCYTIC LEUKAEMIA
     Dosage: 22/DEC/2017, LAST  DOSE PRIOR TO SAE 520 MG
     Route: 065
     Dates: start: 20171220, end: 20171222
  15. RAMIPRIL. [Concomitant]
     Active Substance: RAMIPRIL
     Route: 048
     Dates: start: 20171124, end: 20180103

REACTIONS (1)
  - Dermatitis exfoliative generalised [Recovered/Resolved]

NARRATIVE: CASE EVENT DATE: 20180104
